FAERS Safety Report 8977914 (Version 1)
Quarter: 2012Q4

REPORT INFORMATION
  Report Type: Report from Study
  Country: GB (occurrence: GB)
  Receive Date: 20121219
  Receipt Date: 20121219
  Transmission Date: 20130627
  Serious: Yes (Hospitalization)
  Sender: FDA-Public Use
  Company Number: GB-ASTRAZENECA-2012SE92732

PATIENT
  Age: 55 Year
  Sex: Female

DRUGS (3)
  1. VANDETANIB [Suspect]
     Indication: METASTATIC MALIGNANT MELANOMA
     Route: 048
     Dates: start: 20121122, end: 20121128
  2. DEXAMETHASONE [Concomitant]
     Indication: INFLAMMATION
     Route: 048
     Dates: start: 201211, end: 20121203
  3. DEXAMETHASONE [Concomitant]
     Indication: INFLAMMATION
     Route: 048
     Dates: start: 20121204

REACTIONS (1)
  - Cognitive disorder [Recovering/Resolving]
